FAERS Safety Report 23457659 (Version 1)
Quarter: 2024Q1

REPORT INFORMATION
  Report Type: Spontaneous
  Country: US (occurrence: US)
  Receive Date: 20240130
  Receipt Date: 20240130
  Transmission Date: 20240410
  Serious: Yes (Hospitalization, Other)
  Sender: FDA-Public Use
  Company Number: US-SANOFI-01921194

PATIENT
  Age: 89 Year
  Sex: Female

DRUGS (13)
  1. PLAVIX [Suspect]
     Active Substance: CLOPIDOGREL BISULFATE
     Dosage: 75 MG, QD
  2. ELIQUIS [Concomitant]
     Active Substance: APIXABAN
     Dosage: 5MG, TWICE A DAY
     Route: 048
  3. NORVASC [Concomitant]
     Active Substance: AMLODIPINE BESYLATE
     Dosage: 10 MG, QD
  4. CRESTOR [Concomitant]
     Active Substance: ROSUVASTATIN CALCIUM
     Dosage: 10 MG, QD
  5. IRON [Concomitant]
     Active Substance: IRON
     Dosage: 65 MG, BID
  6. MINERALS\VITAMINS [Concomitant]
     Active Substance: MINERALS\VITAMINS
  7. LEVOXYL [Concomitant]
     Active Substance: LEVOTHYROXINE SODIUM
     Dosage: 50MCG ? ONCE A DAY
  8. CALCIUM [Concomitant]
     Active Substance: CALCIUM
     Dosage: 500 MG, QD
  9. IRBESARTAN [Concomitant]
     Active Substance: IRBESARTAN
     Dosage: 300 MG, QD
  10. METOPROLOL [Concomitant]
     Active Substance: METOPROLOL
     Dosage: 50 MG, QD
  11. FOLIC ACID [Concomitant]
     Active Substance: FOLIC ACID
     Dosage: 1 MG, QD
  12. MECLIZINE [Concomitant]
     Active Substance: MECLIZINE HYDROCHLORIDE
     Indication: Vertigo
     Dosage: 25 MG, BID
  13. HYDRALAZINE [Concomitant]
     Active Substance: HYDRALAZINE HYDROCHLORIDE
     Dosage: 2 DF, BID

REACTIONS (18)
  - Swollen tongue [Unknown]
  - Knee arthroplasty [Unknown]
  - Vertigo [Unknown]
  - Chronic obstructive pulmonary disease [Unknown]
  - Wheezing [Unknown]
  - Mitral valve prolapse [Unknown]
  - Sleep apnoea syndrome [Unknown]
  - Cardiac murmur [Unknown]
  - Brain scan abnormal [Unknown]
  - Thyroid disorder [Unknown]
  - Dyspnoea [Unknown]
  - Renal disorder [Unknown]
  - Body height decreased [Unknown]
  - Weight abnormal [Unknown]
  - Asthenia [Unknown]
  - Arthralgia [Unknown]
  - Haemorrhoids [Unknown]
  - Dizziness [Unknown]

NARRATIVE: CASE EVENT DATE: 20231101
